FAERS Safety Report 6667549-2 (Version None)
Quarter: 2010Q2

REPORT INFORMATION
  Report Type: 
  Country: None (occurrence: None)
  Receive Date: 20100405
  Receipt Date: 20100323
  Transmission Date: 20101027
  Serious: Yes (Hospitalization)
  Sender: FDA-Public Use
  Company Number: US-ELI_LILLY_AND_COMPANY-US201003006833

PATIENT
  Age: 35 Year
  Sex: Female

DRUGS (5)
  1. STRATTERA [Suspect]
     Indication: ATTENTION DEFICIT/HYPERACTIVITY DISORDER
     Dosage: 25 MG, UNK
     Dates: start: 20100223
  2. STRATTERA [Suspect]
     Dosage: 40 MG, UNK
  3. STRATTERA [Suspect]
     Dosage: 60 MG, UNK
  4. STRATTERA [Suspect]
     Dosage: 80 MG, UNK
     Dates: start: 20100310
  5. MARIJUANA [Concomitant]

REACTIONS (6)
  - HALLUCINATION [None]
  - LOSS OF CONSCIOUSNESS [None]
  - NAUSEA [None]
  - OVERDOSE [None]
  - RETROGRADE AMNESIA [None]
  - VOMITING [None]
